FAERS Safety Report 8281775-0 (Version None)
Quarter: 2012Q2

REPORT INFORMATION
  Report Type: 
  Country: None (occurrence: None)
  Receive Date: 20120413
  Receipt Date: 20120406
  Transmission Date: 20120825
  Serious: Yes (Hospitalization, Other)
  Sender: FDA-Public Use
  Company Number: JP-JNJFOC-20111110997

PATIENT
  Age: 82 Year
  Sex: Female

DRUGS (4)
  1. PRIMPERAN TAB [Suspect]
     Indication: PRODUCT USED FOR UNKNOWN INDICATION
     Route: 065
     Dates: start: 20111115
  2. PENTAZOCINE LACTATE [Concomitant]
     Route: 065
     Dates: start: 20111121
  3. HYDROXYZINE PAMOATE [Concomitant]
     Route: 065
     Dates: start: 20111121
  4. TRAMADOL HYDROCHLORIDE AND ACETAMINOPHEN [Suspect]
     Indication: PAIN
     Route: 048
     Dates: start: 20111115

REACTIONS (2)
  - EXTRAPYRAMIDAL DISORDER [None]
  - ABASIA [None]
